FAERS Safety Report 17358299 (Version 1)
Quarter: 2020Q1

REPORT INFORMATION
  Report Type: Spontaneous
  Country: NL (occurrence: NL)
  Receive Date: 20200201
  Receipt Date: 20200201
  Transmission Date: 20200409
  Serious: Yes (Hospitalization)
  Sender: FDA-Public Use
  Company Number: NL-TEVA-2020-NL-1178051

PATIENT
  Age: 64 Year
  Sex: Male
  Weight: 84 kg

DRUGS (19)
  1. OMEPRZOL CAPSULE MSR 20 MG [Concomitant]
     Dosage: 20 MILLIGRAM DAILY; 1 X A DAY 1 PIECE
  2. PARACETAMOL [Concomitant]
     Active Substance: ACETAMINOPHEN
     Dosage: EVT. 4 DD 1000 MG PARACETAMOL IV
  3. NADROPARINE INJVL WWSP 2850 IE=0.3 ML [Concomitant]
     Dosage: 1 X A DAY 1 PIECE
  4. DROPERIDOL INJVL 2,5 MG/ML AMP 1 MIL [Concomitant]
     Dosage: ZN 3 DD 1,25 MG, DOSE: 1 MG
  5. VENLAFAXINE CAPSULE MGA 75 MG [Concomitant]
     Dosage: 1 X A DAY 2 PIECE (150 MG)
  6. DICLOFENAC [Interacting]
     Active Substance: DICLOFENAC
     Indication: ARTHRITIS BACTERIAL
     Dosage: 50 MG (MILLIGRAMS), 3 TIMES A DAY, 1
     Route: 065
     Dates: start: 20200104, end: 20200108
  7. ONDANSETRON INJVL 2 MG/ML AMP 2 ML [Concomitant]
     Dosage: ZN 4 MG
  8. OLSALAZINE CAPSULE 250 MG [Concomitant]
     Dosage: 2 X A DAY 1 PIECE (250 MG)
  9. MACROGOL/ZOUTEN PDR VOOR DRANK (MOVICOLON + GENERIEK) [Concomitant]
     Dosage: 1 DOSAGE FORMS DAILY; 1 X A DAY 1 PIECE
  10. LOSARTAN. [Suspect]
     Active Substance: LOSARTAN
     Indication: HYPERTENSION
     Dosage: 25 MILLIGRAM DAILY; 25 MG (MILLIGRAMS)
     Dates: start: 20200108, end: 20200109
  11. PARACETAMOL TABLET 500 MG [Concomitant]
     Dosage: 4 DD 2, EVENT 4 DD 1000 MG PARACETAMOL IV
  12. OXYCOCON TABLET MGA 5 MG (OXYCONTIN) [Concomitant]
     Dosage: 2-3 X PER DAY 1 PIECE (5 MG)
  13. ACETYLSALICYLZUUR DISP 80 MG [Concomitant]
     Dosage: 80 MILLIGRAM DAILY; 1 X A DAY 1 PIECE
  14. CALCIUMCARBONAAT/COLECALC KAUWTABLET 1,25G/800 IE (500 MG CA) [Concomitant]
     Dosage: 1 DOSAGE FORMS DAILY; 1 X A DAY 1 PIECE
  15. MORFINE HCL PCH INJVLS 10 MG/ML [Concomitant]
     Dosage: 4-6 X PER DAY 7.5 MG
  16. BENZYLPENICILLINE INJPDR 1.000.00 IE (NATRIUM) [Concomitant]
     Dosage: 6 X A DAY 1 PIECE
  17. GLIMEPIRIDE TABLET 2 MG [Concomitant]
     Dosage: 2 MILLIGRAM DAILY; 1 X A DAY 1 PIECE
  18. METFORMINE TABLET 500 MG [Concomitant]
     Dosage: 2 X A DAY 2 PIECE (1000 MG PER 12 HOURS)
  19. ATORVASTATINE TABLET 40 MG (ALS CA-ZOUT-3-WATER) [Concomitant]
     Dosage: 40 MILLIGRAM DAILY; 1 X A DAY 1 PIECE

REACTIONS (2)
  - Drug interaction [Unknown]
  - Acute kidney injury [Recovered/Resolved]

NARRATIVE: CASE EVENT DATE: 20200108
